FAERS Safety Report 15968986 (Version 1)
Quarter: 2019Q1

REPORT INFORMATION
  Report Type: Spontaneous
  Country: US (occurrence: US)
  Receive Date: 20190215
  Receipt Date: 20190215
  Transmission Date: 20190418
  Serious: No
  Sender: FDA-Public Use
  Company Number: US-MATRIXX INITIATIVES, INC.-2062743

PATIENT
  Age: 78 Year
  Sex: Male
  Weight: 97.27 kg

DRUGS (3)
  1. UNSPECIFIED CHOLESTEROL  MEDICATION [Concomitant]
     Active Substance: UNSPECIFIED INGREDIENT
  2. UNSPECIFIED BLOOD PRESSURE MEDICATION [Concomitant]
     Active Substance: UNSPECIFIED INGREDIENT
  3. ZICAM COLD REMEDY [Suspect]
     Active Substance: HOMEOPATHICS\ZINC ACETATE\ZINC GLUCONATE
     Route: 048

REACTIONS (2)
  - Dysgeusia [Recovered/Resolved]
  - Ageusia [Recovered/Resolved]
